FAERS Safety Report 5732185-9 (Version None)
Quarter: 2008Q2

REPORT INFORMATION
  Report Type: 
  Country: None (occurrence: None)
  Receive Date: 20080508
  Receipt Date: 20080501
  Transmission Date: 20081010
  Serious: Yes (Other)
  Sender: FDA-Public Use
  Company Number: CA-ALLERGAN-0805290US

PATIENT
  Sex: Female

DRUGS (3)
  1. BOTOX [Suspect]
     Indication: TORTICOLLIS
     Dosage: 100 UNITS, SINGLE
     Route: 030
     Dates: start: 20070911, end: 20070911
  2. BOTOX [Suspect]
     Indication: BLEPHAROSPASM
     Dosage: 200 UNITS, SINGLE
     Route: 030
     Dates: start: 20071211, end: 20071211
  3. BOTOX [Suspect]
     Dosage: 200 UNITS, SINGLE
     Route: 030
     Dates: start: 20080311, end: 20080311

REACTIONS (6)
  - CHOKING [None]
  - DYSPHAGIA [None]
  - RESPIRATORY DISTRESS [None]
  - THERAPEUTIC RESPONSE DECREASED [None]
  - VISION BLURRED [None]
  - VISUAL ACUITY REDUCED [None]
